FAERS Safety Report 9265988 (Version 2)
Quarter: 2013Q3

REPORT INFORMATION
  Report Type: Spontaneous
  Country: US (occurrence: US)
  Receive Date: 20130501
  Receipt Date: 20130718
  Transmission Date: 20140515
  Serious: Yes (Hospitalization, Other)
  Sender: FDA-Public Use
  Company Number: US-B.I. PHARMACEUTICALS,INC./RIDGEFIELD-2013-BI-11941BP

PATIENT
  Age: 83 Year
  Sex: Female
  Weight: 78.93 kg

DRUGS (9)
  1. PRADAXA [Suspect]
     Indication: ANTICOAGULANT THERAPY
     Dosage: 300 MG
     Route: 048
     Dates: start: 20110513, end: 20111206
  2. MULTAQ [Concomitant]
  3. COREG [Concomitant]
  4. LISINOPRIL [Concomitant]
     Dosage: 5 MG
  5. VESICARE [Concomitant]
     Dosage: 5 MG
  6. LASIX [Concomitant]
     Dosage: 120 MG
  7. OS-CAL D [Concomitant]
  8. MULTIVITAMIN [Concomitant]
  9. ASPIRIN [Concomitant]
     Dosage: 81 MG

REACTIONS (2)
  - Gastrointestinal haemorrhage [Unknown]
  - Coagulopathy [Recovered/Resolved]
